FAERS Safety Report 9767440 (Version 1)
Quarter: 2013Q4

REPORT INFORMATION
  Report Type: Spontaneous
  Country: US (occurrence: None)
  Receive Date: 20131105
  Receipt Date: 20131105
  Transmission Date: 20140711
  Serious: Yes (Other)
  Sender: FDA-Public Use
  Company Number: 54973 AE # 1513

PATIENT
  Age: 8 Month
  Sex: Male

DRUGS (1)
  1. HYLAND^S BABY TEETHING TABLETS [Suspect]
     Indication: IRRITABILITY
     Dosage: 2 TABS UNDER TONGUE

REACTIONS (1)
  - Convulsion [None]
